FAERS Safety Report 10712264 (Version 3)
Quarter: 2015Q3

REPORT INFORMATION
  Report Type: Spontaneous
  Country: US (occurrence: US)
  Receive Date: 20150114
  Receipt Date: 20150826
  Transmission Date: 20151125
  Serious: Yes (Hospitalization, Other)
  Sender: FDA-Public Use
  Company Number: US-JNJFOC-20150104508

PATIENT
  Age: 22 Year
  Sex: Female
  Weight: 54.43 kg

DRUGS (7)
  1. TYLENOL EXTRA STRENGTH [Suspect]
     Active Substance: ACETAMINOPHEN
     Indication: HEADACHE
     Dosage: 6-12 PILLS PER DAY.
     Route: 048
     Dates: start: 20070701, end: 20070709
  2. SOMA [Concomitant]
     Active Substance: CARISOPRODOL
     Indication: PRODUCT USED FOR UNKNOWN INDICATION
     Route: 065
  3. ALCOHOL. [Suspect]
     Active Substance: ALCOHOL
     Indication: PRODUCT USED FOR UNKNOWN INDICATION
     Dosage: 1-2 BEERS MAXIMUM IN 10 DAY PERIOD.
     Route: 048
     Dates: start: 2010
  4. TYLENOL PM [Suspect]
     Active Substance: ACETAMINOPHEN\DIPHENHYDRAMINE
     Indication: INSOMNIA
     Dosage: 6-8 PILLS PER NIGHT.
     Route: 048
     Dates: start: 20070701, end: 20070709
  5. BENZODIAZEPINES NOS [Concomitant]
     Active Substance: BENZODIAZEPINE
     Indication: PRODUCT USED FOR UNKNOWN INDICATION
     Route: 065
  6. TYLENOL EXTRA STRENGTH [Suspect]
     Active Substance: ACETAMINOPHEN
     Indication: PAIN MANAGEMENT
     Dosage: 6-12 PILLS PER DAY.
     Route: 048
     Dates: start: 20070701, end: 20070709
  7. OPIATES [Concomitant]
     Active Substance: UNSPECIFIED INGREDIENT
     Indication: PRODUCT USED FOR UNKNOWN INDICATION
     Route: 065

REACTIONS (6)
  - Toxicity to various agents [Unknown]
  - Subdural haematoma [Unknown]
  - Liver transplant [Unknown]
  - Overdose [Unknown]
  - Acute hepatic failure [Unknown]
  - Coma [Unknown]

NARRATIVE: CASE EVENT DATE: 20070710
